FAERS Safety Report 14630406 (Version 1)
Quarter: 2018Q1

REPORT INFORMATION
  Report Type: Spontaneous
  Country: US (occurrence: US)
  Receive Date: 20180313
  Receipt Date: 20180313
  Transmission Date: 20180509
  Serious: No
  Sender: FDA-Public Use
  Company Number: None

PATIENT

DRUGS (1)
  1. FOMEPIZOLE. [Suspect]
     Active Substance: FOMEPIZOLE
     Indication: TOXICITY TO VARIOUS AGENTS
     Dates: start: 20180306, end: 20180306

REACTIONS (1)
  - Product quality issue [None]
